FAERS Safety Report 9637892 (Version 2)
Quarter: 2016Q1

REPORT INFORMATION
  Report Type: Report from Study
  Country: US (occurrence: US)
  Receive Date: 20131022
  Receipt Date: 20160222
  Transmission Date: 20160526
  Serious: Yes (Other)
  Sender: FDA-Public Use
  Company Number: US-ROCHE-1291611

PATIENT
  Age: 62 Year
  Sex: Female
  Weight: 63.02 kg

DRUGS (11)
  1. PROTONIX (UNITED STATES) [Concomitant]
     Route: 048
  2. LASIX [Concomitant]
     Active Substance: FUROSEMIDE
     Dosage: DAILY
     Route: 065
  3. HERCEPTIN [Suspect]
     Active Substance: TRASTUZUMAB
     Indication: THROMBOCYTOPENIA
  4. THEOPHYLLINE [Concomitant]
     Active Substance: THEOPHYLLINE ANHYDROUS
     Route: 048
  5. SINGULAIR [Concomitant]
     Active Substance: MONTELUKAST SODIUM
     Dosage: PM
     Route: 048
  6. PROTONIX (UNITED STATES) [Concomitant]
     Route: 048
  7. HERCEPTIN [Suspect]
     Active Substance: TRASTUZUMAB
     Indication: BREAST CANCER
     Route: 042
  8. THEOPHYLLINE [Concomitant]
     Active Substance: THEOPHYLLINE ANHYDROUS
     Dosage: 60 TABLETS
     Route: 048
  9. HERCEPTIN [Suspect]
     Active Substance: TRASTUZUMAB
     Indication: METASTASES TO BONE
     Route: 042
     Dates: start: 20110627
  10. XGEVA [Concomitant]
     Active Substance: DENOSUMAB
     Route: 058
  11. HERCEPTIN [Suspect]
     Active Substance: TRASTUZUMAB
     Indication: METASTASES TO LIVER
     Route: 042
     Dates: start: 20120725

REACTIONS (10)
  - Platelet count decreased [Unknown]
  - Gastrooesophageal reflux disease [Unknown]
  - Varicose vein [Unknown]
  - Ejection fraction decreased [Recovered/Resolved]
  - Varices oesophageal [Unknown]
  - Blood pressure systolic increased [Unknown]
  - Fatigue [Unknown]
  - Decreased appetite [Unknown]
  - Portal hypertension [Unknown]
  - Carcinoembryonic antigen increased [Unknown]

NARRATIVE: CASE EVENT DATE: 20130829
